FAERS Safety Report 16934025 (Version 1)
Quarter: 2019Q4

REPORT INFORMATION
  Report Type: Spontaneous
  Country: US (occurrence: US)
  Receive Date: 20191018
  Receipt Date: 20191018
  Transmission Date: 20200122
  Serious: Yes (Other)
  Sender: FDA-Public Use
  Company Number: US-TORRENT-00009353

PATIENT
  Age: 65 Year
  Sex: Female

DRUGS (1)
  1. LOSARTAN AND HYDROCHLOROTHIAZIDE [Suspect]
     Active Substance: HYDROCHLOROTHIAZIDE\LOSARTAN POTASSIUM
     Indication: HYPERTENSION
     Dosage: 100/25 MG
     Route: 048
     Dates: start: 2019, end: 201909

REACTIONS (6)
  - Dyspnoea [Recovered/Resolved]
  - Cough [Recovering/Resolving]
  - Wheezing [Recovered/Resolved]
  - Choking [Recovering/Resolving]
  - Gait disturbance [Recovered/Resolved]
  - Urticaria [Recovered/Resolved]

NARRATIVE: CASE EVENT DATE: 2019
